FAERS Safety Report 5109493-8 (Version None)
Quarter: 2006Q3

REPORT INFORMATION
  Report Type: 
  Country: None (occurrence: None)
  Receive Date: 20060918
  Receipt Date: 20060904
  Transmission Date: 20061208
  Serious: Yes (Hospitalization)
  Sender: FDA-Public Use
  Company Number: 2006105537

PATIENT
  Age: 73 Year
  Sex: Female

DRUGS (4)
  1. SUTENT [Suspect]
     Indication: RENAL CELL CARCINOMA STAGE UNSPECIFIED
     Dosage: 50 MG (50 MG, INTERVAL: CYCLIC), ORAL
     Route: 048
     Dates: start: 20060814, end: 20060827
  2. TEMAZEPAM [Concomitant]
  3. LOXOBERAL (SODIUM PICOSULFATE) [Concomitant]
  4. FERROUS SULPHATE (FERROUS SULFATE) [Concomitant]

REACTIONS (10)
  - BLOOD CREATININE INCREASED [None]
  - BLOOD LACTATE DEHYDROGENASE INCREASED [None]
  - BLOOD UREA INCREASED [None]
  - FALL [None]
  - HEADACHE [None]
  - LYMPHOCYTE COUNT DECREASED [None]
  - MEMORY IMPAIRMENT [None]
  - NAUSEA [None]
  - PLATELET COUNT DECREASED [None]
  - VOMITING [None]
